FAERS Safety Report 25490739 (Version 1)
Quarter: 2025Q2

REPORT INFORMATION
  Report Type: Spontaneous
  Country: US (occurrence: US)
  Receive Date: 20250627
  Receipt Date: 20250627
  Transmission Date: 20250716
  Serious: Yes (Hospitalization, Other)
  Sender: RK PHARMA
  Company Number: US-RK PHARMA, INC-20250600085

PATIENT

DRUGS (1)
  1. MITOMYCIN [Suspect]
     Active Substance: MITOMYCIN

REACTIONS (4)
  - Toxicity to various agents [Not Recovered/Not Resolved]
  - Ocular toxicity [Not Recovered/Not Resolved]
  - Wrong product administered [Unknown]
  - Incorrect route of product administration [Unknown]
